FAERS Safety Report 20215923 (Version 1)
Quarter: 2021Q4

REPORT INFORMATION
  Report Type: Spontaneous
  Country: US (occurrence: US)
  Receive Date: 20211222
  Receipt Date: 20211222
  Transmission Date: 20220303
  Serious: Yes (Life-Threatening)
  Sender: FDA-Public Use
  Company Number: US-SUN PHARMACEUTICAL INDUSTRIES LTD-2021R1-321183

PATIENT
  Age: 78 Year
  Sex: Female

DRUGS (7)
  1. AZITHROMYCIN [Suspect]
     Active Substance: AZITHROMYCIN
     Indication: COVID-19
     Dosage: UNK
     Route: 065
  2. DEXAMETHASONE [Suspect]
     Active Substance: DEXAMETHASONE
     Indication: COVID-19
     Dosage: UNK
     Route: 065
  3. CEFTRIAXONE [Suspect]
     Active Substance: CEFTRIAXONE
     Indication: COVID-19
     Dosage: UNK
     Route: 065
  4. REMDESIVIR [Suspect]
     Active Substance: REMDESIVIR
     Indication: Antiviral treatment
     Dosage: 200 MG ON DAY 1 FOLLOWED BY 4 DAYS OF 100 MG IV
     Route: 065
  5. VITAMIN C [Suspect]
     Active Substance: ASCORBIC ACID
     Indication: COVID-19
     Dosage: UNK
     Route: 065
  6. VITAMIN D [Suspect]
     Active Substance: VITAMIN D NOS
     Indication: COVID-19
     Dosage: UNK
     Route: 065
  7. ZINC [Suspect]
     Active Substance: ZINC
     Indication: COVID-19
     Dosage: UNK
     Route: 065

REACTIONS (1)
  - Condition aggravated [Unknown]
